FAERS Safety Report 8953733 (Version 1)
Quarter: 2012Q4

REPORT INFORMATION
  Report Type: 
  Country: US (occurrence: US)
  Receive Date: 20121206
  Receipt Date: 20121206
  Transmission Date: 20130627
  Serious: Yes (Other)
  Sender: FDA-Public Use
  Company Number: US-PFIZER INC-2012305501

PATIENT
  Sex: Female

DRUGS (3)
  1. LIPITOR [Suspect]
     Dosage: UNK
     Dates: start: 20111101, end: 20120112
  2. CELEBREX [Suspect]
     Dosage: UNK
     Dates: start: 20111101, end: 20120112
  3. NEURONTIN [Suspect]
     Dosage: UNK
     Dates: start: 20111101, end: 20120112

REACTIONS (2)
  - Blindness [Unknown]
  - Pain [Unknown]
